FAERS Safety Report 7524601-7 (Version None)
Quarter: 2011Q2

REPORT INFORMATION
  Report Type: 
  Country: None (occurrence: None)
  Receive Date: 20110606
  Receipt Date: 20110525
  Transmission Date: 20111010
  Serious: Yes (Disabling)
  Sender: FDA-Public Use
  Company Number: BR-BAYER-2011-037846

PATIENT
  Age: 53 Year
  Sex: Male

DRUGS (2)
  1. BETAFERON [Suspect]
     Indication: SECONDARY PROGRESSIVE MULTIPLE SCLEROSIS
     Dosage: 1 ML, QD
     Route: 058
     Dates: start: 20100701, end: 20100801
  2. UNKNOWN MEDICATION NOS [Concomitant]
     Indication: TREMOR
     Dosage: 1 DF, QD
     Route: 048

REACTIONS (2)
  - ABASIA [None]
  - INFLUENZA LIKE ILLNESS [None]
